FAERS Safety Report 7007130-9 (Version None)
Quarter: 2010Q3

REPORT INFORMATION
  Report Type: 
  Country: None (occurrence: None)
  Receive Date: 20100913
  Receipt Date: 20100830
  Transmission Date: 20110219
  Serious: Yes (Hospitalization)
  Sender: FDA-Public Use
  Company Number: B0673218A

PATIENT
  Age: 49 Year
  Sex: Female

DRUGS (4)
  1. ATOVAQUONE + PROGUANIL HYDROCHLORIDE (FORMULATION UNKNOWN) (ATOVAQUONE [Suspect]
     Indication: MALARIA PROPHYLAXIS
  2. CARVEDILOL [Concomitant]
  3. LISINOPRIL [Concomitant]
  4. FRUSEMIDE [Concomitant]

REACTIONS (14)
  - ABDOMINAL PAIN [None]
  - CAMPYLOBACTER TEST POSITIVE [None]
  - CULTURE STOOL POSITIVE [None]
  - DEHYDRATION [None]
  - DENGUE FEVER [None]
  - DIARRHOEA [None]
  - DRUG TOXICITY [None]
  - GASTROENTERITIS [None]
  - LEPTOSPIROSIS [None]
  - NAUSEA [None]
  - PANCYTOPENIA [None]
  - PYREXIA [None]
  - RENAL IMPAIRMENT [None]
  - TYPHOID FEVER [None]
